FAERS Safety Report 20040754 (Version 1)
Quarter: 2021Q4

REPORT INFORMATION
  Report Type: Spontaneous
  Country: US (occurrence: None)
  Receive Date: 20211108
  Receipt Date: 20211108
  Transmission Date: 20220303
  Serious: Yes (Hospitalization)
  Sender: FDA-Public Use
  Company Number: None

PATIENT
  Sex: Female

DRUGS (2)
  1. HUMIRA [Suspect]
     Active Substance: ADALIMUMAB
     Indication: Psoriatic arthropathy
     Dosage: FREQUENCY : EVERY OTHER WEEK; 1 PEN?
     Route: 058
     Dates: start: 20210120
  2. BINAXNOW COVID-19 KIT [Concomitant]

REACTIONS (2)
  - Kidney infection [None]
  - Therapy interrupted [None]
